FAERS Safety Report 13304279 (Version 1)
Quarter: 2017Q1

REPORT INFORMATION
  Report Type: Spontaneous
  Country: US (occurrence: US)
  Receive Date: 20170308
  Receipt Date: 20170308
  Transmission Date: 20170428
  Serious: No
  Sender: FDA-Public Use
  Company Number: US-ELI_LILLY_AND_COMPANY-US201702011621

PATIENT
  Sex: Male

DRUGS (2)
  1. LANTUS [Concomitant]
     Active Substance: INSULIN GLARGINE
  2. HUMALOG [Suspect]
     Active Substance: INSULIN LISPRO
     Indication: TYPE 2 DIABETES MELLITUS
     Dosage: 22 UNK, UNK
     Route: 065
     Dates: start: 2014

REACTIONS (3)
  - Injection site bruising [Not Recovered/Not Resolved]
  - Drug administered at inappropriate site [Unknown]
  - Injection site pain [Not Recovered/Not Resolved]
